FAERS Safety Report 24680418 (Version 1)
Quarter: 2024Q4

REPORT INFORMATION
  Report Type: Spontaneous
  Country: US (occurrence: US)
  Receive Date: 20241129
  Receipt Date: 20241129
  Transmission Date: 20250115
  Serious: Yes (Other)
  Sender: BRACCO
  Company Number: US-BRACCO-2024US05989

PATIENT
  Age: 31 Year
  Sex: Female

DRUGS (12)
  1. LUMASON [Suspect]
     Active Substance: SULFUR HEXAFLUORIDE
     Indication: Echocardiogram
     Dosage: 1 ML, SINGLE
     Route: 042
     Dates: start: 20240922, end: 20240922
  2. LUMASON [Suspect]
     Active Substance: SULFUR HEXAFLUORIDE
     Indication: Echocardiogram
     Dosage: 1 ML, SINGLE
     Route: 042
     Dates: start: 20240922, end: 20240922
  3. LUMASON [Suspect]
     Active Substance: SULFUR HEXAFLUORIDE
     Indication: Echocardiogram
     Dosage: 1 ML, SINGLE
     Route: 042
     Dates: start: 20240922, end: 20240922
  4. ATOGEPANT [Concomitant]
     Active Substance: ATOGEPANT
  5. FOLIC ACID [Concomitant]
     Active Substance: FOLIC ACID
  6. HYDROCHLOROTHIAZIDE [Concomitant]
     Active Substance: HYDROCHLOROTHIAZIDE
     Dosage: 12.5 UNK, QD
     Route: 048
  7. MEDROL [Concomitant]
     Active Substance: METHYLPREDNISOLONE
  8. METFORMIN [Concomitant]
     Active Substance: METFORMIN HYDROCHLORIDE
     Dosage: 500 UNK, BID
  9. VITAMINS [Concomitant]
     Active Substance: VITAMINS
  10. SEMAGLUTIDE [Concomitant]
     Active Substance: SEMAGLUTIDE
  11. HERBALS\TURMERIC [Concomitant]
     Active Substance: HERBALS\TURMERIC
     Route: 048
  12. Vitamin d complex [Concomitant]

REACTIONS (1)
  - Anaphylactic reaction [Recovered/Resolved]

NARRATIVE: CASE EVENT DATE: 20240922
